FAERS Safety Report 10282084 (Version 1)
Quarter: 2014Q3

REPORT INFORMATION
  Report Type: Spontaneous
  Country: SE (occurrence: SE)
  Receive Date: 20140707
  Receipt Date: 20140707
  Transmission Date: 20150326
  Serious: Yes (Life-Threatening, Hospitalization)
  Sender: FDA-Public Use
  Company Number: SE-GLAXOSMITHKLINE-B1010839A

PATIENT
  Age: 65 Year
  Sex: Female

DRUGS (5)
  1. IMIGRAN NASAL SPRAY [Suspect]
     Active Substance: SUMATRIPTAN
     Indication: MIGRAINE
     Route: 065
     Dates: start: 20130220
  2. IMIGRAN [Concomitant]
     Active Substance: SUMATRIPTAN SUCCINATE
  3. LIPITOR [Concomitant]
     Active Substance: ATORVASTATIN CALCIUM
  4. LEVAXIN [Concomitant]
     Active Substance: LEVOTHYROXINE SODIUM
  5. LOSARTAN [Concomitant]
     Active Substance: LOSARTAN

REACTIONS (2)
  - Lung disorder [Recovered/Resolved with Sequelae]
  - Bronchiolitis [Recovered/Resolved with Sequelae]

NARRATIVE: CASE EVENT DATE: 2012
